FAERS Safety Report 6179664-0 (Version None)
Quarter: 2009Q2

REPORT INFORMATION
  Report Type: 
  Country: None (occurrence: None)
  Receive Date: 20090505
  Receipt Date: 20090430
  Transmission Date: 20091009
  Serious: No
  Sender: FDA-Public Use
  Company Number: US-B.I. PHARMACEUTICALS,INC./RIDGEFIELD-2009-BP-05516BP

PATIENT
  Sex: Male

DRUGS (20)
  1. SPIRIVA [Suspect]
     Indication: CHRONIC OBSTRUCTIVE PULMONARY DISEASE
     Dates: start: 20081201
  2. SPIRIVA [Suspect]
     Indication: EMPHYSEMA
  3. SPIRIVA [Suspect]
     Indication: BRONCHITIS CHRONIC
  4. SPIRIVA [Suspect]
     Indication: DYSPNOEA
  5. ALBUTEROL SULFATE [Concomitant]
     Indication: DYSPNOEA
  6. ALBUTEROL SULFATE [Concomitant]
     Indication: CHRONIC OBSTRUCTIVE PULMONARY DISEASE
  7. ALBUTEROL SULFATE [Concomitant]
     Indication: EMPHYSEMA
  8. ALBUTEROL SULFATE [Concomitant]
     Indication: BRONCHITIS CHRONIC
  9. ATROVENT [Concomitant]
     Indication: DYSPNOEA
  10. ATROVENT [Concomitant]
     Indication: CHRONIC OBSTRUCTIVE PULMONARY DISEASE
  11. ATROVENT [Concomitant]
     Indication: EMPHYSEMA
  12. ATROVENT [Concomitant]
     Indication: BRONCHITIS CHRONIC
  13. COMBIVENT [Concomitant]
     Indication: DYSPNOEA
  14. COMBIVENT [Concomitant]
     Indication: CHRONIC OBSTRUCTIVE PULMONARY DISEASE
  15. COMBIVENT [Concomitant]
     Indication: EMPHYSEMA
  16. COMBIVENT [Concomitant]
     Indication: BRONCHITIS CHRONIC
  17. FORADIL [Concomitant]
     Indication: DYSPNOEA
  18. FORADIL [Concomitant]
     Indication: CHRONIC OBSTRUCTIVE PULMONARY DISEASE
  19. FORADIL [Concomitant]
     Indication: EMPHYSEMA
  20. FORADIL [Concomitant]
     Indication: BRONCHITIS CHRONIC

REACTIONS (1)
  - GLAUCOMA [None]
